FAERS Safety Report 4842145-8 (Version None)
Quarter: 2005Q4

REPORT INFORMATION
  Report Type: 
  Country: None (occurrence: None)
  Receive Date: 20051130
  Receipt Date: 20050914
  Transmission Date: 20060501
  Serious: Yes (Life-Threatening, Hospitalization, Disabling)
  Sender: FDA-Public Use
  Company Number: US-MERCK-0509USA01889

PATIENT
  Sex: Male
  Weight: 73 kg

DRUGS (5)
  1. VIOXX [Suspect]
     Indication: ARTHRITIS
     Route: 048
     Dates: start: 20000601, end: 20000801
  2. VIOXX [Suspect]
     Indication: BACK PAIN
     Route: 048
     Dates: start: 20000601, end: 20000801
  3. TRAMADOL HYDROCHLORIDE [Concomitant]
     Route: 065
  4. SOMA [Concomitant]
     Route: 065
  5. LIPITOR [Concomitant]
     Route: 065
     Dates: start: 20000101

REACTIONS (1)
  - ARTERIOSCLEROSIS [None]
